FAERS Safety Report 16986081 (Version 1)
Quarter: 2019Q4

REPORT INFORMATION
  Report Type: Spontaneous
  Country: US (occurrence: US)
  Receive Date: 20190917
  Receipt Date: 20190917
  Transmission Date: 20200122
  Serious: Yes (Disabling)
  Sender: FDA-Public Use
  Company Number: None

PATIENT
  Age: 38 Year
  Sex: Male

DRUGS (8)
  1. DOCUSATE SOD [Concomitant]
  2. XOPENEX HFA [Concomitant]
     Active Substance: LEVALBUTEROL TARTRATE
  3. OMEPRAZOLE CAP DR [Concomitant]
  4. SYSTANE PF EYEDROP [Concomitant]
  5. REFRESH LIQUID GEL EYE GEL [Concomitant]
  6. OMNISCAN [Suspect]
     Active Substance: GADODIAMIDE
     Indication: SCAN WITH CONTRAST
     Dates: start: 20130708, end: 20130708
  7. NAPROXEN. [Concomitant]
     Active Substance: NAPROXEN
  8. SALINE NASAL SPRAY [Concomitant]
     Active Substance: SODIUM CHLORIDE

REACTIONS (14)
  - Nausea [None]
  - Skin induration [None]
  - Unevaluable event [None]
  - Headache [None]
  - Urinary tract disorder [None]
  - Pain [None]
  - Autonomic nervous system imbalance [None]
  - Nervous system disorder [None]
  - Visual impairment [None]
  - Dizziness [None]
  - Respiratory tract infection [None]
  - Neuropathy peripheral [None]
  - Gastrointestinal disorder [None]
  - Liver disorder [None]

NARRATIVE: CASE EVENT DATE: 2013
